FAERS Safety Report 21003336 (Version 1)
Quarter: 2022Q2

REPORT INFORMATION
  Report Type: Report from Study
  Country: DE (occurrence: DE)
  Receive Date: 20220624
  Receipt Date: 20220624
  Transmission Date: 20220720
  Serious: Yes (Other)
  Sender: FDA-Public Use
  Company Number: DE-ASTELLAS-2022US022295

PATIENT
  Age: 37 Year
  Sex: Female

DRUGS (15)
  1. REGADENOSON [Suspect]
     Active Substance: REGADENOSON
     Indication: Magnetic resonance imaging
     Dosage: 5 ML, DISSOLVED IN 5 ML NACL, ONCE
     Route: 042
  2. REGADENOSON [Suspect]
     Active Substance: REGADENOSON
     Indication: Magnetic resonance imaging
     Dosage: 5 ML, DISSOLVED IN 5 ML NACL, ONCE
     Route: 042
  3. REGADENOSON [Suspect]
     Active Substance: REGADENOSON
     Indication: Magnetic resonance imaging
     Dosage: 5 ML, DISSOLVED IN 5 ML NACL, ONCE
     Route: 042
  4. REGADENOSON [Suspect]
     Active Substance: REGADENOSON
     Indication: Magnetic resonance imaging
     Dosage: 5 ML, DISSOLVED IN 5 ML NACL, ONCE
     Route: 042
  5. REGADENOSON [Suspect]
     Active Substance: REGADENOSON
     Indication: Scan myocardial perfusion
  6. REGADENOSON [Suspect]
     Active Substance: REGADENOSON
     Indication: Scan myocardial perfusion
  7. REGADENOSON [Suspect]
     Active Substance: REGADENOSON
     Indication: Scan myocardial perfusion
  8. REGADENOSON [Suspect]
     Active Substance: REGADENOSON
     Indication: Scan myocardial perfusion
  9. REGADENOSON [Suspect]
     Active Substance: REGADENOSON
     Indication: Myocarditis
  10. REGADENOSON [Suspect]
     Active Substance: REGADENOSON
     Indication: Myocarditis
  11. REGADENOSON [Suspect]
     Active Substance: REGADENOSON
     Indication: Myocarditis
  12. REGADENOSON [Suspect]
     Active Substance: REGADENOSON
     Indication: Myocarditis
  13. GADOBUTROL [Concomitant]
     Active Substance: GADOBUTROL
     Indication: Scan myocardial perfusion
     Dosage: 1 MMOL/KG, UNKNOWN FREQ.
     Route: 065
  14. SODIUM CHLORIDE [Concomitant]
     Active Substance: SODIUM CHLORIDE
     Indication: Product used for unknown indication
     Dosage: UNK UNK, UNKNOWN FREQ.
     Route: 065
  15. COVID-19 vaccine [Concomitant]
     Indication: Product used for unknown indication
     Dosage: UNK UNK, UNKNOWN FREQ.
     Route: 065

REACTIONS (2)
  - Dyspnoea exertional [Unknown]
  - Angina pectoris [Unknown]
